FAERS Safety Report 14841780 (Version 1)
Quarter: 2018Q2

REPORT INFORMATION
  Report Type: Spontaneous
  Country: US (occurrence: US)
  Receive Date: 20180418
  Receipt Date: 20180418
  Transmission Date: 20180711
  Serious: Yes (Hospitalization)
  Sender: FDA-Public Use
  Company Number: None

PATIENT
  Age: 72 Year
  Sex: Male

DRUGS (1)
  1. HEPARIN [Suspect]
     Active Substance: HEPARIN SODIUM
     Indication: ANEURYSM REPAIR
     Route: 042
     Dates: start: 20180328, end: 20180329

REACTIONS (4)
  - Anticoagulation drug level above therapeutic [None]
  - Activated partial thromboplastin time prolonged [None]
  - Compartment syndrome [None]
  - Haematoma [None]

NARRATIVE: CASE EVENT DATE: 20180329
